FAERS Safety Report 18026594 (Version 1)
Quarter: 2020Q3

REPORT INFORMATION
  Report Type: Spontaneous
  Country: SE (occurrence: SE)
  Receive Date: 20200715
  Receipt Date: 20200715
  Transmission Date: 20201103
  Serious: Yes (Life-Threatening, Disabling, Other)
  Sender: FDA-Public Use
  Company Number: SE-SHIRE-SE202022399

PATIENT

DRUGS (9)
  1. ABILIFY [Concomitant]
     Active Substance: ARIPIPRAZOLE
     Indication: MANIA
     Dosage: UNKNOWN
     Route: 065
  2. NITRAZEPAM [Concomitant]
     Active Substance: NITRAZEPAM
     Indication: PRODUCT USED FOR UNKNOWN INDICATION
     Route: 065
     Dates: start: 2020, end: 2020
  3. QUETIAPINE. [Concomitant]
     Active Substance: QUETIAPINE
     Indication: PRODUCT USED FOR UNKNOWN INDICATION
     Dosage: UNKNOWN
     Route: 065
     Dates: start: 20181025, end: 20190515
  4. ELVANSE [Suspect]
     Active Substance: LISDEXAMFETAMINE DIMESYLATE
     Indication: PRODUCT USED FOR UNKNOWN INDICATION
     Dosage: 30 MILLIGRAM
     Route: 065
  5. ABILIFY [Concomitant]
     Active Substance: ARIPIPRAZOLE
     Indication: PSYCHOTIC DISORDER
  6. THERALEN [Suspect]
     Active Substance: TRIMEPRAZINE
     Indication: PRODUCT USED FOR UNKNOWN INDICATION
     Dosage: UNKNOWN
     Route: 065
     Dates: end: 2020
  7. ELVANSE [Suspect]
     Active Substance: LISDEXAMFETAMINE DIMESYLATE
     Dosage: 90 MILLIGRAM, 1X/DAY:QD
     Route: 065
     Dates: start: 2018
  8. LITHIONIT [Suspect]
     Active Substance: LITHIUM SULFATE
     Indication: BIPOLAR DISORDER
     Dosage: MAXIMUM DOSE 5 TABLETS/DAY
     Route: 048
     Dates: start: 20181025, end: 20200114
  9. VOXRA [Concomitant]
     Active Substance: BUPROPION HYDROCHLORIDE
     Indication: PRODUCT USED FOR UNKNOWN INDICATION
     Dosage: UNKNOWN
     Route: 065
     Dates: start: 20181119, end: 20190615

REACTIONS (36)
  - Myoclonus [Recovered/Resolved with Sequelae]
  - Paralysis [Recovered/Resolved with Sequelae]
  - Seizure [Recovered/Resolved with Sequelae]
  - Weight increased [Unknown]
  - Indifference [Recovered/Resolved with Sequelae]
  - Hunger [Recovered/Resolved with Sequelae]
  - Circadian rhythm sleep disorder [Unknown]
  - Ill-defined disorder [Recovered/Resolved]
  - Aggression [Unknown]
  - Psychotic disorder [Unknown]
  - Alopecia [Unknown]
  - Paraesthesia [Recovered/Resolved]
  - Amnesia [Unknown]
  - Muscle twitching [Unknown]
  - Blunted affect [Recovered/Resolved with Sequelae]
  - Brain oedema [Recovered/Resolved with Sequelae]
  - Epilepsy [Recovered/Resolved with Sequelae]
  - Bipolar disorder [Recovered/Resolved with Sequelae]
  - Syncope [Recovered/Resolved with Sequelae]
  - Musculoskeletal stiffness [Unknown]
  - Tinnitus [Recovered/Resolved]
  - Tremor [Unknown]
  - Depressed level of consciousness [Recovered/Resolved with Sequelae]
  - Depression [Unknown]
  - Anxiety [Unknown]
  - Fatigue [Unknown]
  - Craniocerebral injury [Recovered/Resolved with Sequelae]
  - Off label use [Unknown]
  - Drug interaction [Recovered/Resolved with Sequelae]
  - Arrhythmia [Recovered/Resolved with Sequelae]
  - Dysmenorrhoea [Recovered/Resolved]
  - Mania [Unknown]
  - Condition aggravated [Recovered/Resolved with Sequelae]
  - Thirst [Recovered/Resolved]
  - Confusional state [Unknown]
  - Headache [Recovered/Resolved]

NARRATIVE: CASE EVENT DATE: 2016
